FAERS Safety Report 10580181 (Version 1)
Quarter: 2014Q4

REPORT INFORMATION
  Report Type: Spontaneous
  Country: IT (occurrence: IT)
  Receive Date: 20141112
  Receipt Date: 20141112
  Transmission Date: 20150529
  Serious: Yes (Hospitalization)
  Sender: FDA-Public Use
  Company Number: IT-SA-2014SA152310

PATIENT
  Age: 79 Year
  Sex: Female

DRUGS (7)
  1. CARDICOR [Concomitant]
     Active Substance: BISOPROLOL
     Dosage: 1.25 MG
  2. LASIX [Suspect]
     Active Substance: FUROSEMIDE
     Indication: HYPERTENSION
     Route: 048
     Dates: start: 20120101, end: 20140504
  3. LIMPIDEX [Concomitant]
     Active Substance: LANSOPRAZOLE
     Dosage: 30 MG
  4. SINTROM [Concomitant]
     Active Substance: ACENOCOUMAROL
  5. NIMESULIDE [Interacting]
     Active Substance: NIMESULIDE
     Indication: PAIN IN EXTREMITY
     Route: 048
     Dates: start: 20140502, end: 20140504
  6. HUMALOG [Concomitant]
     Active Substance: INSULIN LISPRO
     Dosage: DOSE:18 UNIT(S)
  7. PRITOR [Interacting]
     Active Substance: TELMISARTAN
     Indication: HYPERTENSION
     Route: 048
     Dates: start: 20120101, end: 20140504

REACTIONS (3)
  - Acute kidney injury [Not Recovered/Not Resolved]
  - Oliguria [Not Recovered/Not Resolved]
  - Hyperkalaemia [Not Recovered/Not Resolved]

NARRATIVE: CASE EVENT DATE: 20140504
